FAERS Safety Report 13623087 (Version 1)
Quarter: 2017Q2

REPORT INFORMATION
  Report Type: Spontaneous
  Country: US (occurrence: US)
  Receive Date: 20170607
  Receipt Date: 20170607
  Transmission Date: 20170830
  Serious: No
  Sender: FDA-Public Use
  Company Number: US-PURDUE-USA-2016-0133564

PATIENT
  Sex: Female

DRUGS (1)
  1. BUTRANS [Suspect]
     Active Substance: BUPRENORPHINE
     Indication: PAIN
     Dosage: 20 MCG/HR, WEEKLY
     Route: 062
     Dates: start: 201605

REACTIONS (7)
  - Application site irritation [Unknown]
  - Drug administered at inappropriate site [Unknown]
  - Application site scab [Unknown]
  - Application site vesicles [Unknown]
  - Application site pruritus [Unknown]
  - Drug effect decreased [Unknown]
  - Product adhesion issue [Unknown]
